FAERS Safety Report 15406087 (Version 2)
Quarter: 2018Q3

REPORT INFORMATION
  Report Type: Spontaneous
  Country: US (occurrence: US)
  Receive Date: 20180920
  Receipt Date: 20180926
  Transmission Date: 20181010
  Serious: No
  Sender: FDA-Public Use
  Company Number: US-PFIZER INC-2018376317

PATIENT
  Age: 67 Year
  Sex: Female
  Weight: 70.3 kg

DRUGS (2)
  1. CHILDRENS ADVIL [Suspect]
     Active Substance: IBUPROFEN
     Indication: PAIN
     Dosage: UNK
     Route: 048
     Dates: start: 20180915, end: 20180916
  2. CHILDRENS ADVIL [Suspect]
     Active Substance: IBUPROFEN
     Indication: LIGAMENT SPRAIN

REACTIONS (4)
  - Blister [Unknown]
  - Intentional product misuse [Unknown]
  - Erythema [Not Recovered/Not Resolved]
  - Pruritus [Not Recovered/Not Resolved]

NARRATIVE: CASE EVENT DATE: 20180915
